FAERS Safety Report 6565031-4 (Version None)
Quarter: 2010Q1

REPORT INFORMATION
  Report Type: 
  Country: None (occurrence: None)
  Receive Date: 20100201
  Receipt Date: 20100127
  Transmission Date: 20100710
  Serious: Yes (Hospitalization)
  Sender: FDA-Public Use
  Company Number: US-BRISTOL-MYERS SQUIBB COMPANY-14952659

PATIENT
  Age: 66 Year
  Sex: Female
  Weight: 53 kg

DRUGS (16)
  1. ORENCIA [Suspect]
     Indication: RHEUMATOID ARTHRITIS
     Dosage: 1ST INFUSION ON 3DEC09,2ND INFUSION ON 16DEC09 AND 3RD INFUSION ON 05JAN2010
     Dates: start: 20091203
  2. ACYCLOVIR [Concomitant]
  3. ALDACTONE [Concomitant]
  4. CELEXA [Concomitant]
  5. DIOVAN [Concomitant]
  6. LEVOTHYROXINE SODIUM [Concomitant]
  7. ADDERALL 10 [Concomitant]
  8. NIFEDIPINE [Concomitant]
  9. MUCINEX [Concomitant]
  10. NORCO [Concomitant]
  11. PROTONIX [Concomitant]
  12. SULFASALAZINE [Concomitant]
  13. SYMBICORT [Concomitant]
  14. PREDNISONE [Concomitant]
  15. ANTIBIOTICS [Concomitant]
  16. OXYGEN [Concomitant]

REACTIONS (6)
  - BRONCHITIS [None]
  - CHRONIC OBSTRUCTIVE PULMONARY DISEASE [None]
  - FATIGUE [None]
  - HYPERTENSION [None]
  - PARANASAL SINUS HYPERSECRETION [None]
  - PNEUMONIA [None]
